FAERS Safety Report 18338246 (Version 1)
Quarter: 2020Q4

REPORT INFORMATION
  Report Type: Other
  Country: CA (occurrence: CA)
  Receive Date: 20201002
  Receipt Date: 20201002
  Transmission Date: 20210113
  Serious: Yes (Other)
  Sender: FDA-Public Use
  Company Number: CA-CELLTRION INC.-2020CA027489

PATIENT

DRUGS (17)
  1. ACETYLSALICYLIC ACID [Concomitant]
     Active Substance: ASPIRIN
  2. CLONAZEPAM. [Concomitant]
     Active Substance: CLONAZEPAM
  3. CLOPIDOGREL [Concomitant]
     Active Substance: CLOPIDOGREL BISULFATE
  4. LEUCOVORIN [FOLINIC ACID] [Concomitant]
     Active Substance: LEUCOVORIN
  5. METHOTREXATE. [Concomitant]
     Active Substance: METHOTREXATE
  6. PREDNISONE. [Concomitant]
     Active Substance: PREDNISONE
  7. HYDROXYCHLOROQUINE SULFATE. [Concomitant]
     Active Substance: HYDROXYCHLOROQUINE SULFATE
  8. NIFEDIPINE. [Concomitant]
     Active Substance: NIFEDIPINE
  9. RITUXIMAB (UNKNOWN) [Suspect]
     Active Substance: RITUXIMAB
     Indication: RHEUMATOID ARTHRITIS
     Dosage: 1000 MG
     Route: 042
  10. ALENDRONATE SODIUM. [Concomitant]
     Active Substance: ALENDRONATE SODIUM
  11. ATENOLOL. [Concomitant]
     Active Substance: ATENOLOL
  12. ATORVASTATIN CALCIUM. [Concomitant]
     Active Substance: ATORVASTATIN CALCIUM
  13. PANTOLOC [PANTOPRAZOLE] [Concomitant]
     Active Substance: PANTOPRAZOLE SODIUM
  14. PANTOPRAZOLE [Concomitant]
     Active Substance: PANTOPRAZOLE
  15. ACETAMINOPHEN/TRAMADOL HYDROCHLORIDE [Concomitant]
     Active Substance: ACETAMINOPHEN\TRAMADOL HYDROCHLORIDE
  16. RAMIPRIL. [Concomitant]
     Active Substance: RAMIPRIL
  17. VOLTAREN [DICLOFENAC DIETHYLAMINE] [Concomitant]
     Active Substance: DICLOFENAC DIETHYLAMINE

REACTIONS (10)
  - Oxygen saturation decreased [Recovered/Resolved]
  - Hypertension [Recovered/Resolved]
  - Product use in unapproved indication [Recovered/Resolved]
  - Blood pressure systolic abnormal [Recovered/Resolved]
  - Cataract [Recovered/Resolved]
  - Off label use [Recovered/Resolved]
  - Arthritis [Recovered/Resolved]
  - Blood pressure systolic increased [Recovered/Resolved]
  - Arthralgia [Recovered/Resolved]
  - Heart rate decreased [Recovered/Resolved]
